FAERS Safety Report 4585280-4 (Version None)
Quarter: 2005Q1

REPORT INFORMATION
  Report Type: 
  Country: None (occurrence: None)
  Receive Date: 20050214
  Receipt Date: 20050203
  Transmission Date: 20050727
  Serious: Yes (Other)
  Sender: FDA-Public Use
  Company Number: 2005025392

PATIENT
  Age: 67 Year
  Sex: Male
  Weight: 113.3993 kg

DRUGS (7)
  1. LIPITOR [Suspect]
     Indication: BLOOD CHOLESTEROL
     Dosage: 10 MG(10 MG, 1 IN 1 D), ORAL
     Route: 048
     Dates: start: 20041001, end: 20041101
  2. WARFARIN SODIUM [Concomitant]
  3. OMEPRAZOLE [Concomitant]
  4. FUROSEMIDE [Concomitant]
  5. VALDECOXIB [Concomitant]
  6. MELOXICAM [Concomitant]
  7. ROFECOXIB [Concomitant]

REACTIONS (4)
  - MOBILITY DECREASED [None]
  - MUSCLE DISORDER [None]
  - MUSCULAR WEAKNESS [None]
  - WALKING AID USER [None]
